FAERS Safety Report 9316848 (Version 1)
Quarter: 2013Q1

REPORT INFORMATION
  Report Type: Spontaneous
  Country: US (occurrence: None)
  Receive Date: 20130328
  Receipt Date: 20130328
  Transmission Date: 20140127
  Serious: Yes (Death)
  Sender: FDA-Public Use
  Company Number: None

PATIENT
  Sex: Female
  Weight: 58 kg

DRUGS (12)
  1. HEPARIN [Suspect]
     Indication: EMBOLISM
     Dosage: 30,000 UNITS ONE TIME BOLUS IV BOLUS
     Route: 040
     Dates: start: 20130515, end: 20130515
  2. HEPARIN [Suspect]
     Indication: ANTICOAGULANT THERAPY
     Dosage: 800 UNITS HOUR IV DRIP
     Route: 041
     Dates: start: 20130516, end: 20130516
  3. SETRALINE [Concomitant]
  4. WARFARIN [Concomitant]
  5. ASPIRIN [Concomitant]
  6. PLAVIX [Concomitant]
  7. ENOXAPARIN [Concomitant]
  8. ACETAMINOPHEN [Concomitant]
  9. DOCUSATE SODIUM [Concomitant]
  10. CALCIUM CARBONATE [Concomitant]
  11. MULTIVITAMIN [Concomitant]
  12. RANTIDINE [Concomitant]

REACTIONS (2)
  - Haemorrhage intracranial [None]
  - Brain herniation [None]
